FAERS Safety Report 9490832 (Version 1)
Quarter: 2013Q3

REPORT INFORMATION
  Report Type: Spontaneous
  Country: ES (occurrence: ES)
  Receive Date: 20130830
  Receipt Date: 20130830
  Transmission Date: 20140515
  Serious: Yes (Other)
  Sender: FDA-Public Use
  Company Number: ES-ASTRAZENECA-2013SE65439

PATIENT
  Age: 59 Year
  Sex: Female
  Weight: 59 kg

DRUGS (3)
  1. PROVISACOR [Suspect]
     Route: 048
     Dates: start: 20110614, end: 20121029
  2. OMEPRAZOLE [Concomitant]
  3. SERTRALINE [Concomitant]

REACTIONS (3)
  - Hypercreatinaemia [Unknown]
  - Myalgia [Recovering/Resolving]
  - Blood creatine phosphokinase increased [Unknown]
